FAERS Safety Report 20758056 (Version 4)
Quarter: 2022Q3

REPORT INFORMATION
  Report Type: Report from Study
  Country: US (occurrence: US)
  Receive Date: 20220427
  Receipt Date: 20220719
  Transmission Date: 20221027
  Serious: Yes (Hospitalization, Other)
  Sender: FDA-Public Use
  Company Number: US-TAKEDA-2022TUS027187

PATIENT
  Age: 56 Year
  Sex: Male
  Weight: 68 kg

DRUGS (89)
  1. HUMAN IMMUNOGLOBULIN G [Suspect]
     Active Substance: HUMAN IMMUNOGLOBULIN G
     Indication: Immunodeficiency common variable
     Dosage: 40 GRAM, Q3WEEKS
     Route: 042
  2. HUMAN IMMUNOGLOBULIN G [Suspect]
     Active Substance: HUMAN IMMUNOGLOBULIN G
     Dosage: 45 GRAM, Q4WEEKS
     Route: 042
     Dates: start: 20210728
  3. GAMUNEX-C [Suspect]
     Active Substance: HUMAN IMMUNOGLOBULIN G
     Indication: Immunodeficiency common variable
     Dosage: 45 GRAM, Q4WEEKS
     Route: 042
     Dates: start: 20210728
  4. ACETAMINOPHEN [Concomitant]
     Active Substance: ACETAMINOPHEN
     Indication: Product used for unknown indication
     Route: 065
  5. DIPHENHYDRAMINE [Concomitant]
     Active Substance: DIPHENHYDRAMINE
     Indication: Product used for unknown indication
     Route: 065
  6. HEPARIN [Concomitant]
     Active Substance: HEPARIN SODIUM
     Indication: Product used for unknown indication
     Route: 065
  7. SODIUM CHLORIDE [Concomitant]
     Active Substance: SODIUM CHLORIDE
     Indication: Product used for unknown indication
     Route: 065
  8. EPINEPHRINE [Concomitant]
     Active Substance: EPINEPHRINE
     Indication: Product used for unknown indication
     Route: 065
  9. Lmx [Concomitant]
     Indication: Product used for unknown indication
     Route: 065
  10. MEDROL [Concomitant]
     Active Substance: METHYLPREDNISOLONE
  11. DEPO-TESTOSTERONE [Concomitant]
     Active Substance: TESTOSTERONE CYPIONATE
  12. PATADAY [Concomitant]
     Active Substance: OLOPATADINE HYDROCHLORIDE
  13. CITRUCEL [Concomitant]
     Active Substance: METHYLCELLULOSE (4000 MPA.S)
  14. FAMOTIDINE [Concomitant]
     Active Substance: FAMOTIDINE
  15. BUMETANIDE [Concomitant]
     Active Substance: BUMETANIDE
  16. COLCHICINE [Concomitant]
     Active Substance: COLCHICINE
  17. MIRALAX [Concomitant]
     Active Substance: POLYETHYLENE GLYCOL 3350
  18. VALACYCLOVIR [Concomitant]
     Active Substance: VALACYCLOVIR HYDROCHLORIDE
  19. OXYCODONE HYDROCHLORIDE [Concomitant]
     Active Substance: OXYCODONE HYDROCHLORIDE
  20. ALBUTEROL [Concomitant]
     Active Substance: ALBUTEROL
  21. LIDOCAINE [Concomitant]
     Active Substance: LIDOCAINE
  22. LATANOPROST [Concomitant]
     Active Substance: LATANOPROST
  23. ERYTHROMYCIN [Concomitant]
     Active Substance: ERYTHROMYCIN
  24. TOPIRAMATE [Concomitant]
     Active Substance: TOPIRAMATE
  25. MELATONIN [Concomitant]
     Active Substance: MELATONIN
  26. SUCRALFATE [Concomitant]
     Active Substance: SUCRALFATE
  27. XYZAL [Concomitant]
     Active Substance: LEVOCETIRIZINE DIHYDROCHLORIDE
  28. ADEMPAS [Concomitant]
     Active Substance: RIOCIGUAT
  29. ZYRTEC [Concomitant]
     Active Substance: CETIRIZINE HYDROCHLORIDE
  30. CLOBETASOL [Concomitant]
     Active Substance: CLOBETASOL
     Indication: Product used for unknown indication
     Route: 065
  31. VITAMIN D3 [Concomitant]
     Active Substance: CHOLECALCIFEROL
  32. PROLIA [Concomitant]
     Active Substance: DENOSUMAB
  33. CLONAZEPAM [Concomitant]
     Active Substance: CLONAZEPAM
  34. BISOPROLOL FUMARATE [Concomitant]
     Active Substance: BISOPROLOL FUMARATE
     Indication: Product used for unknown indication
     Route: 065
  35. POTASSIUM CHLORIDE [Concomitant]
     Active Substance: POTASSIUM CHLORIDE
  36. ONDANSETRON [Concomitant]
     Active Substance: ONDANSETRON
  37. TIZANIDINE ARROW [Concomitant]
  38. NYSTATIN [Concomitant]
     Active Substance: NYSTATIN
  39. SODIUM [Concomitant]
     Active Substance: SODIUM
     Indication: Product used for unknown indication
     Route: 065
  40. OXYGEN [Concomitant]
     Active Substance: OXYGEN
     Indication: Product used for unknown indication
     Route: 065
  41. TEMAZEPAM [Concomitant]
     Active Substance: TEMAZEPAM
  42. EXCEDRIN [Concomitant]
     Active Substance: ACETAMINOPHEN\ASPIRIN\CAFFEINE
  43. BREO ELLIPTA [Concomitant]
     Active Substance: FLUTICASONE FUROATE\VILANTEROL TRIFENATATE
  44. MIDODRINE HYDROCHLORIDE [Concomitant]
     Active Substance: MIDODRINE HYDROCHLORIDE
  45. BISACODYL [Concomitant]
     Active Substance: BISACODYL
  46. PANTOPRAZOLE [Concomitant]
     Active Substance: PANTOPRAZOLE
  47. SACCHAROMYCES CEREVISIAE [Concomitant]
     Active Substance: SACCHAROMYCES CEREVISIAE
  48. HYDROMORPHONE [Concomitant]
     Active Substance: HYDROMORPHONE
  49. ORPHENADRINE [Concomitant]
     Active Substance: ORPHENADRINE
  50. AZELASTINE [Concomitant]
     Active Substance: AZELASTINE
  51. DURAGESIC [Concomitant]
     Active Substance: FENTANYL
  52. OXCARBAZEPINE [Concomitant]
     Active Substance: OXCARBAZEPINE
  53. SPIRONOLACTONE [Concomitant]
     Active Substance: SPIRONOLACTONE
  54. MOVANTIK [Concomitant]
     Active Substance: NALOXEGOL OXALATE
  55. ARIXTRA [Concomitant]
     Active Substance: FONDAPARINUX SODIUM
     Indication: Product used for unknown indication
     Route: 065
  56. TYLENOL [Concomitant]
     Active Substance: ACETAMINOPHEN
  57. Potassium 167mg with magnesium + vitamin b6 [Concomitant]
  58. LEVETIRACETAM [Concomitant]
     Active Substance: LEVETIRACETAM
  59. Zinc + castor oil [Concomitant]
  60. ZIAC [Concomitant]
     Active Substance: BISOPROLOL FUMARATE\HYDROCHLOROTHIAZIDE
  61. DOXYCYCLINE [Concomitant]
     Active Substance: DOXYCYCLINE
  62. TRAVATAN C [Concomitant]
  63. CHLORHEXIDINE [Concomitant]
     Active Substance: CHLORHEXIDINE
  64. TOPIRAMATE [Concomitant]
     Active Substance: TOPIRAMATE
  65. METHYLPREDNISOLONE [Concomitant]
     Active Substance: METHYLPREDNISOLONE
  66. ASPERCREME NOS [Concomitant]
     Active Substance: MENTHOL\TROLAMINE SALICYLATE
  67. VITAMIN D2 [Concomitant]
     Active Substance: ERGOCALCIFEROL
  68. PROAIR HFA [Concomitant]
     Active Substance: ALBUTEROL SULFATE
  69. ULORIC [Concomitant]
     Active Substance: FEBUXOSTAT
     Indication: Product used for unknown indication
  70. MUPIROCIN [Concomitant]
     Active Substance: MUPIROCIN
     Indication: Product used for unknown indication
  71. ALBUTEROL SULFATE [Concomitant]
     Active Substance: ALBUTEROL SULFATE
     Indication: Product used for unknown indication
     Route: 065
  72. OYSTERCAL D [Concomitant]
     Indication: Product used for unknown indication
     Route: 065
  73. BETAMETHASONE DIPROPIONATE [Concomitant]
     Active Substance: BETAMETHASONE DIPROPIONATE
  74. DOCUSATE SODIUM [Concomitant]
     Active Substance: DOCUSATE SODIUM
  75. XOLAIR [Concomitant]
     Active Substance: OMALIZUMAB
  76. SODIUM CHLORIDE [Concomitant]
     Active Substance: SODIUM CHLORIDE
  77. POTASSIUM [Concomitant]
     Active Substance: POTASSIUM
  78. TOPIRAMATE [Concomitant]
     Active Substance: TOPIRAMATE
  79. BISOPROLOL [Concomitant]
     Active Substance: BISOPROLOL
  80. TIZANIDINE [Concomitant]
     Active Substance: TIZANIDINE
  81. LEVETIRACETAM [Concomitant]
     Active Substance: LEVETIRACETAM
  82. MIDODRINE [Concomitant]
     Active Substance: MIDODRINE
  83. DOXYCYCLINE HYCLATE [Concomitant]
     Active Substance: DOXYCYCLINE HYCLATE
  84. BETAMETHASONE [Concomitant]
     Active Substance: BETAMETHASONE
  85. PREGABALIN [Concomitant]
     Active Substance: PREGABALIN
     Route: 065
  86. CLONIDINE HYDROCHLORIDE [Concomitant]
     Active Substance: CLONIDINE HYDROCHLORIDE
  87. CARVEDILOL [Concomitant]
     Active Substance: CARVEDILOL
  88. XARELTO [Concomitant]
     Active Substance: RIVAROXABAN
     Dosage: UNK
  89. IPRATROPIUM BROMIDE [Concomitant]
     Active Substance: IPRATROPIUM BROMIDE

REACTIONS (17)
  - COVID-19 pneumonia [Unknown]
  - Syncope [Unknown]
  - Influenza [Unknown]
  - Hypertension [Unknown]
  - Autoimmune disorder [Unknown]
  - Adverse drug reaction [Unknown]
  - Arthritis [Unknown]
  - Illness [Unknown]
  - Feeling abnormal [Unknown]
  - Blood glucose decreased [Unknown]
  - Infusion site rash [Unknown]
  - Infusion related reaction [Unknown]
  - Infusion site urticaria [Unknown]
  - Infusion site erythema [Unknown]
  - Malaise [Unknown]
  - Cough [Unknown]
  - Fatigue [Unknown]

NARRATIVE: CASE EVENT DATE: 20220325
